FAERS Safety Report 15880377 (Version 1)
Quarter: 2019Q1

REPORT INFORMATION
  Report Type: Spontaneous
  Country: IT (occurrence: IT)
  Receive Date: 20190128
  Receipt Date: 20190128
  Transmission Date: 20190417
  Serious: Yes (Hospitalization, Other)
  Sender: FDA-Public Use
  Company Number: IT-BRISTOL-MYERS SQUIBB COMPANY-BMS-2018-052456

PATIENT
  Age: 66 Year
  Sex: Female

DRUGS (1)
  1. OPDIVO [Suspect]
     Active Substance: NIVOLUMAB
     Indication: MALIGNANT MELANOMA
     Dosage: 210 MG, Q2WK
     Route: 050
     Dates: start: 20171205, end: 20180221

REACTIONS (3)
  - Acute kidney injury [Unknown]
  - Nephrotic syndrome [Unknown]
  - Glomerulosclerosis [Recovering/Resolving]

NARRATIVE: CASE EVENT DATE: 20180306
